FAERS Safety Report 13893880 (Version 1)
Quarter: 2017Q3

REPORT INFORMATION
  Report Type: Spontaneous
  Country: US (occurrence: US)
  Receive Date: 20170822
  Receipt Date: 20170822
  Transmission Date: 20171127
  Serious: No
  Sender: FDA-Public Use
  Company Number: US-TARO-2016TAR00625

PATIENT
  Age: 62 Year
  Sex: Male
  Weight: 108.84 kg

DRUGS (9)
  1. PREDNISONE. [Suspect]
     Active Substance: PREDNISONE
     Indication: DERMATITIS CONTACT
  2. METOPROLOL. [Concomitant]
     Active Substance: METOPROLOL
  3. TEGRETOL [Concomitant]
     Active Substance: CARBAMAZEPINE
  4. DILANTIN [Concomitant]
     Active Substance: PHENYTOIN
  5. CLOBETASOL OINTMENT [Suspect]
     Active Substance: CLOBETASOL
     Indication: DERMATITIS CONTACT
     Dosage: UNK UNK, 2X/DAY
     Route: 061
  6. CALCIUM CITRATE [Concomitant]
     Active Substance: CALCIUM CITRATE
  7. CLOBETASOL PROPIONATE CREAM USP 0.05% [Suspect]
     Active Substance: CLOBETASOL PROPIONATE
     Indication: DERMATITIS CONTACT
     Dosage: UNK UNK, 2X/DAY
     Route: 061
     Dates: start: 20160709, end: 20160712
  8. PHENOBARBITAL. [Concomitant]
     Active Substance: PHENOBARBITAL
  9. SIMVASTATIN. [Concomitant]
     Active Substance: SIMVASTATIN

REACTIONS (2)
  - Drug ineffective [Recovered/Resolved]
  - Drug dispensing error [Not Recovered/Not Resolved]

NARRATIVE: CASE EVENT DATE: 20160708
